FAERS Safety Report 7464611-1 (Version None)
Quarter: 2011Q2

REPORT INFORMATION
  Report Type: 
  Country: None (occurrence: None)
  Receive Date: 20110509
  Receipt Date: 20110427
  Transmission Date: 20111010
  Serious: Yes (Death, Hospitalization)
  Sender: FDA-Public Use
  Company Number: DE-VALEANT-2011VX000782

PATIENT
  Age: 84 Year
  Sex: Female

DRUGS (9)
  1. TOLCAPONE [Suspect]
     Route: 065
     Dates: start: 20090601
  2. MADOPAR [Concomitant]
     Route: 065
  3. RAMICLAIR [Concomitant]
     Route: 065
  4. TORSEMIDE [Concomitant]
     Route: 065
  5. TILIDINE [Concomitant]
     Route: 065
  6. AMLODIPINE BESYLATE [Concomitant]
     Route: 065
  7. ASPIRIN [Concomitant]
     Route: 065
     Dates: end: 20110204
  8. NOVAMINSULFON [Concomitant]
     Route: 065
  9. DIHYDROERGOTAMINE MESYLATE [Concomitant]
     Route: 065
     Dates: start: 20110301

REACTIONS (2)
  - SUDDEN DEATH [None]
  - CARDIAC DISORDER [None]
